FAERS Safety Report 13120921 (Version 1)
Quarter: 2017Q1

REPORT INFORMATION
  Report Type: Spontaneous
  Country: US (occurrence: US)
  Receive Date: 20170113
  Receipt Date: 20170113
  Transmission Date: 20170428
  Serious: No
  Sender: FDA-Public Use
  Company Number: None

PATIENT
  Age: 69 Year
  Sex: Female

DRUGS (2)
  1. SOVALDI [Suspect]
     Active Substance: SOFOSBUVIR
  2. DAKLINZA [Concomitant]
     Active Substance: DACLATASVIR

REACTIONS (2)
  - Insomnia [None]
  - Fatigue [None]

NARRATIVE: CASE EVENT DATE: 20170113
